FAERS Safety Report 13256422 (Version 4)
Quarter: 2017Q2

REPORT INFORMATION
  Report Type: Report from Study
  Country: US (occurrence: US)
  Receive Date: 20170221
  Receipt Date: 20170627
  Transmission Date: 20170830
  Serious: Yes (Other)
  Sender: FDA-Public Use
  Company Number: US-ASTRAZENECA-2017SE05135

PATIENT
  Sex: Female
  Weight: 69.2 kg

DRUGS (22)
  1. COMPAZINE [Concomitant]
     Active Substance: PROCHLORPERAZINE MALEATE
     Indication: VOMITING
     Dosage: 10 MG, FOUR TIMES A DAY AS REQUIRED
     Route: 048
  2. LYNPARZA [Suspect]
     Active Substance: OLAPARIB
     Indication: NON-SMALL CELL LUNG CANCER
     Route: 048
     Dates: start: 20170111
  3. LYNPARZA [Suspect]
     Active Substance: OLAPARIB
     Indication: OVARIAN CANCER
     Dosage: REDUCED DOSE BY HALF
     Route: 048
  4. CELECOXIB. [Concomitant]
     Active Substance: CELECOXIB
  5. RABEPRAZOLE [Concomitant]
     Active Substance: RABEPRAZOLE
     Route: 048
  6. LEVOTHYROXINE. [Concomitant]
     Active Substance: LEVOTHYROXINE
     Route: 048
  7. COMPAZINE [Concomitant]
     Active Substance: PROCHLORPERAZINE MALEATE
     Indication: NAUSEA
     Dosage: 10 MG, FOUR TIMES A DAY AS REQUIRED
     Route: 048
  8. LYNPARZA [Suspect]
     Active Substance: OLAPARIB
     Indication: OVARIAN CANCER
     Route: 048
     Dates: start: 20170111
  9. LYNPARZA [Suspect]
     Active Substance: OLAPARIB
     Indication: NON-SMALL CELL LUNG CANCER
     Route: 048
     Dates: start: 201701
  10. CENTRUM SILVER [Concomitant]
     Active Substance: MINERALS\VITAMINS
     Route: 048
  11. COLACE [Concomitant]
     Active Substance: DOCUSATE SODIUM
     Indication: CONSTIPATION
     Dosage: 300 MG, THREE TIMES A DAY AS REQUIRED.
     Route: 048
  12. MIRALAX [Concomitant]
     Active Substance: POLYETHYLENE GLYCOL 3350
     Dosage: DAILY
     Route: 048
  13. AMOXICILLIN. [Concomitant]
     Active Substance: AMOXICILLIN
  14. LYNPARZA [Suspect]
     Active Substance: OLAPARIB
     Indication: NON-SMALL CELL LUNG CANCER
     Dosage: REDUCED DOSE BY HALF
     Route: 048
  15. VITAMIN D [Concomitant]
     Active Substance: CHOLECALCIFEROL
     Route: 048
  16. ZETIA [Concomitant]
     Active Substance: EZETIMIBE
     Route: 048
  17. TRAZODONE [Concomitant]
     Active Substance: TRAZODONE HYDROCHLORIDE
  18. LYNPARZA [Suspect]
     Active Substance: OLAPARIB
     Indication: OVARIAN CANCER
     Route: 048
     Dates: start: 201701
  19. PRAZOSIN. [Concomitant]
     Active Substance: PRAZOSIN
     Route: 048
  20. MIRTAZAPINE. [Concomitant]
     Active Substance: MIRTAZAPINE
     Route: 048
  21. ACETAMINOPHEN. [Concomitant]
     Active Substance: ACETAMINOPHEN
     Indication: PYREXIA
     Route: 048
     Dates: start: 20170111
  22. OXYCODONE [Concomitant]
     Active Substance: OXYCODONE
     Indication: PAIN
     Dosage: 5 MG, 1-2 TABS EVERY 4 HOURS AS REQUIRED.

REACTIONS (12)
  - Tumour haemorrhage [Unknown]
  - Colon neoplasm [Unknown]
  - Drug dose omission [Unknown]
  - Product use in unapproved indication [Unknown]
  - Myalgia [Unknown]
  - Arthralgia [Unknown]
  - Off label use [Unknown]
  - Therapy cessation [Unknown]
  - Urinary tract infection [Unknown]
  - Metastases to rectum [Unknown]
  - Rectal haemorrhage [Unknown]
  - Viral upper respiratory tract infection [Unknown]
